FAERS Safety Report 9687701 (Version 1)
Quarter: 2013Q4

REPORT INFORMATION
  Report Type: Spontaneous
  Country: US (occurrence: None)
  Receive Date: 20131113
  Receipt Date: 20131113
  Transmission Date: 20140711
  Serious: No
  Sender: FDA-Public Use
  Company Number: None

PATIENT
  Sex: 0

DRUGS (1)
  1. MIOCHOL E [Suspect]
     Dates: start: 20131108, end: 20131108

REACTIONS (3)
  - Foreign body in eye [None]
  - Vitrectomy [None]
  - Syringe issue [None]
